FAERS Safety Report 7350381-4 (Version None)
Quarter: 2011Q1

REPORT INFORMATION
  Report Type: 
  Country: None (occurrence: None)
  Receive Date: 20110314
  Receipt Date: 20110309
  Transmission Date: 20110831
  Serious: Yes (Hospitalization)
  Sender: FDA-Public Use
  Company Number: JP-BRISTOL-MYERS SQUIBB COMPANY-15380645

PATIENT
  Age: 61 Year
  Sex: Male
  Weight: 54 kg

DRUGS (3)
  1. CETUXIMAB [Suspect]
     Indication: GASTROOESOPHAGEAL CANCER
     Dosage: RECENT INF:2NOV10 NO OF INF:11 STRENGTH:5MG/ML
     Route: 042
     Dates: start: 20100816
  2. CISPLATIN [Suspect]
     Indication: GASTROOESOPHAGEAL CANCER
     Dosage: ON DAY 1 CYCLE RECENT INF:27OCT2010
     Route: 042
     Dates: start: 20100816
  3. XELODA [Suspect]
     Indication: GASTROOESOPHAGEAL CANCER
     Dosage: ON DAY 1-15 DOSE REDUCED TO 750MG/M2 RECENT INF:5NOV10 FOR:TABS
     Route: 048
     Dates: start: 20100816

REACTIONS (1)
  - DECREASED APPETITE [None]
